FAERS Safety Report 4666602-2 (Version None)
Quarter: 2005Q2

REPORT INFORMATION
  Report Type: 
  Country: None (occurrence: None)
  Receive Date: 20050518
  Receipt Date: 20050513
  Transmission Date: 20051028
  Serious: Yes (Other)
  Sender: FDA-Public Use
  Company Number: SUS1-2005-00398

PATIENT
  Age: 55 Year
  Sex: Male
  Weight: 77.1 kg

DRUGS (4)
  1. ADDERALL 10 [Suspect]
     Indication: ATTENTION DEFICIT/HYPERACTIVITY DISORDER
     Dosage: SEE IMAGE
     Dates: start: 20040301, end: 20050401
  2. PROZAC [Concomitant]
  3. PREVACID [Concomitant]
  4. VITAMIN B12 FOR INJECTION (CYANOCOBALAMIN) [Concomitant]

REACTIONS (2)
  - PRESCRIBED OVERDOSE [None]
  - URINARY RETENTION [None]
